FAERS Safety Report 5507271-9 (Version None)
Quarter: 2007Q4

REPORT INFORMATION
  Report Type: 
  Country: None (occurrence: None)
  Receive Date: 20071106
  Receipt Date: 20071102
  Transmission Date: 20080405
  Serious: Yes (Death)
  Sender: FDA-Public Use
  Company Number: PHEH2007US14298

PATIENT
  Age: 61 Year
  Sex: Male

DRUGS (1)
  1. NEORAL [Suspect]
     Dosage: 75 MG, BID
     Route: 048
     Dates: start: 20041217, end: 20070101

REACTIONS (1)
  - DEATH [None]
